FAERS Safety Report 16790783 (Version 1)
Quarter: 2019Q4

REPORT INFORMATION
  Report Type: Spontaneous
  Country: US (occurrence: US)
  Receive Date: 20190909
  Receipt Date: 20190909
  Transmission Date: 20200122
  Serious: No
  Sender: FDA-Public Use
  Company Number: None

PATIENT

DRUGS (1)
  1. PREGABALIN 300 BID [Suspect]
     Active Substance: PREGABALIN

REACTIONS (3)
  - Dizziness [None]
  - Nausea [None]
  - Confusional state [None]
